FAERS Safety Report 9717546 (Version 1)
Quarter: 2013Q4

REPORT INFORMATION
  Report Type: Spontaneous
  Country: US (occurrence: US)
  Receive Date: 20131127
  Receipt Date: 20131127
  Transmission Date: 20140711
  Serious: No
  Sender: FDA-Public Use
  Company Number: US-GILEAD-2009-0020545

PATIENT
  Sex: Female

DRUGS (16)
  1. LETAIRIS [Suspect]
     Indication: PULMONARY ARTERIAL HYPERTENSION
     Route: 048
     Dates: start: 20090114
  2. PLAVIX [Concomitant]
  3. ASPIRIN [Concomitant]
  4. ISOSORBIDE [Concomitant]
  5. LASIX [Concomitant]
  6. METOLAZONE [Concomitant]
  7. CARVEDILOL [Concomitant]
  8. HYDRALAZINE [Concomitant]
  9. LOVASTATIN [Concomitant]
  10. ACTOS [Concomitant]
  11. HYDROCODONE-APAP [Concomitant]
  12. DIPHENHYDRAMINE [Concomitant]
  13. NEXIUM [Concomitant]
  14. VITAMIN D [Concomitant]
  15. CALCITRIOL [Concomitant]
  16. COLACE [Concomitant]

REACTIONS (5)
  - Malaise [Unknown]
  - Fatigue [Unknown]
  - Asthenia [Unknown]
  - Gait disturbance [Unknown]
  - Dyspnoea [Unknown]
